FAERS Safety Report 19731602 (Version 1)
Quarter: 2021Q3

REPORT INFORMATION
  Report Type: Spontaneous
  Country: MX (occurrence: MX)
  Receive Date: 20210820
  Receipt Date: 20210820
  Transmission Date: 20211014
  Serious: Yes (Other)
  Sender: FDA-Public Use
  Company Number: MX-TAKEDA-2021TUS051861

PATIENT
  Age: 69 Year
  Sex: Male

DRUGS (4)
  1. IXAZOMIB [Suspect]
     Active Substance: IXAZOMIB
     Indication: PLASMA CELL MYELOMA REFRACTORY
     Dosage: 4 MILLIGRAM
     Route: 065
  2. ISATUXIMAB [Suspect]
     Active Substance: ISATUXIMAB
     Indication: PLASMA CELL MYELOMA REFRACTORY
     Dosage: UNK
     Route: 065
  3. POMALIDOMIDE [Suspect]
     Active Substance: POMALIDOMIDE
     Indication: PLASMA CELL MYELOMA REFRACTORY
     Dosage: UNK
     Route: 065
  4. DEXAMETHASONE. [Suspect]
     Active Substance: DEXAMETHASONE
     Indication: PLASMA CELL MYELOMA REFRACTORY
     Dosage: UNK
     Route: 065

REACTIONS (3)
  - Amoebiasis [Unknown]
  - Off label use [Unknown]
  - Extrasystoles [Unknown]
